FAERS Safety Report 8150074-X (Version None)
Quarter: 2012Q1

REPORT INFORMATION
  Report Type: 
  Country: None (occurrence: None)
  Receive Date: 20120220
  Receipt Date: 20120209
  Transmission Date: 20120608
  Serious: Yes (Death, Hospitalization, Other)
  Sender: FDA-Public Use
  Company Number: NL-AMGEN-NLDSP2012009384

PATIENT
  Sex: Female

DRUGS (2)
  1. METHOTREXATE [Suspect]
     Dosage: UNK
  2. ENBREL [Suspect]
     Indication: RHEUMATOID ARTHRITIS
     Dosage: 50 MG, WEEKLY
     Dates: start: 20091215

REACTIONS (3)
  - PULMONARY FIBROSIS [None]
  - DYSPNOEA [None]
  - PULMONARY EMBOLISM [None]
